FAERS Safety Report 12968087 (Version 1)
Quarter: 2016Q4

REPORT INFORMATION
  Report Type: Report from Study
  Country: US (occurrence: US)
  Receive Date: 20161123
  Receipt Date: 20161123
  Transmission Date: 20170207
  Serious: Yes (Other)
  Sender: FDA-Public Use
  Company Number: US-BAYER-2016-113674

PATIENT
  Age: 37 Year
  Sex: Female
  Weight: 136 kg

DRUGS (7)
  1. ADEMPAS [Suspect]
     Active Substance: RIOCIGUAT
     Indication: PULMONARY HYPERTENSION
     Dosage: 2.5 MG, TID (LAST SHIPPED 08-SEP-2016)
     Route: 048
  2. WARFARIN [Concomitant]
     Active Substance: WARFARIN
     Dosage: UNK
  3. ADEMPAS [Suspect]
     Active Substance: RIOCIGUAT
     Indication: PULMONARY HYPERTENSION
     Dosage: 1 MG, TID
     Route: 048
  4. LETAIRIS [Concomitant]
     Active Substance: AMBRISENTAN
     Dosage: UNK
  5. ADEMPAS [Suspect]
     Active Substance: RIOCIGUAT
     Indication: PULMONARY HYPERTENSION
     Dosage: 1.5 MG, TID (LAST SHIPPED 08-JUL-2016)
     Route: 048
  6. COUMADIN [Concomitant]
     Active Substance: WARFARIN SODIUM
     Dosage: UNK
  7. ADEMPAS [Suspect]
     Active Substance: RIOCIGUAT
     Indication: PULMONARY HYPERTENSION
     Dosage: UNK
     Dates: start: 20160523

REACTIONS (12)
  - Blood pressure decreased [None]
  - Drug ineffective [None]
  - Hypotension [None]
  - Dizziness [None]
  - Fatigue [Unknown]
  - Dyspnoea exertional [None]
  - Nervousness [None]
  - Dizziness [Unknown]
  - Dyspepsia [None]
  - Chest pain [Unknown]
  - Oedema peripheral [Unknown]
  - Presyncope [Unknown]

NARRATIVE: CASE EVENT DATE: 20160526
